FAERS Safety Report 25519792 (Version 1)
Quarter: 2025Q3

REPORT INFORMATION
  Report Type: Report from Study
  Country: GB (occurrence: GB)
  Receive Date: 20250704
  Receipt Date: 20250704
  Transmission Date: 20251020
  Serious: Yes (Hospitalization, Other)
  Sender: SANDOZ
  Company Number: GB-002147023-NVSC2020GB174804

PATIENT
  Sex: Female

DRUGS (3)
  1. OMNITROPE [Suspect]
     Active Substance: SOMATROPIN
     Indication: Hypopituitarism
     Route: 065
  2. OMNITROPE [Suspect]
     Active Substance: SOMATROPIN
     Route: 065
     Dates: start: 20200616
  3. OMNITROPE [Suspect]
     Active Substance: SOMATROPIN
     Route: 065

REACTIONS (3)
  - Adrenocortical insufficiency acute [Unknown]
  - Cholelithiasis [Unknown]
  - Hypothyroidism [Unknown]
